FAERS Safety Report 13927637 (Version 9)
Quarter: 2024Q1

REPORT INFORMATION
  Report Type: Spontaneous
  Country: US (occurrence: US)
  Receive Date: 20170901
  Receipt Date: 20240305
  Transmission Date: 20240410
  Serious: Yes (Hospitalization)
  Sender: FDA-Public Use
  Company Number: US-PFIZER INC-2017373547

PATIENT
  Age: 76 Year
  Sex: Female
  Weight: 61 kg

DRUGS (16)
  1. XELJANZ XR [Suspect]
     Active Substance: TOFACITINIB CITRATE
     Indication: Rheumatoid arthritis
     Dosage: 11 MG, 1X/DAY
     Route: 048
     Dates: start: 201706
  2. XELJANZ XR [Suspect]
     Active Substance: TOFACITINIB CITRATE
     Dosage: 11 MG, 1X/DAY
     Route: 048
     Dates: start: 201707
  3. XELJANZ XR [Suspect]
     Active Substance: TOFACITINIB CITRATE
     Dosage: 11 MG, 1X/DAY
     Route: 048
     Dates: start: 201710
  4. XELJANZ XR [Suspect]
     Active Substance: TOFACITINIB CITRATE
     Dosage: 11 MG, 1X/DAY
     Route: 048
     Dates: start: 201810
  5. NEXIUM 24HR [Concomitant]
     Active Substance: ESOMEPRAZOLE MAGNESIUM
     Indication: Gastrooesophageal reflux disease
     Dosage: UNK (STARTED ABOUT 11-12 YEARS AGO EVERY MORNING)
  6. VALSARTAN [Concomitant]
     Active Substance: VALSARTAN
     Indication: Blood pressure abnormal
     Dosage: 320 MG, 1X/DAY (STARTED ABOUT 1.5-2 YEARS AGO)
  7. SULTOPRIDE HYDROCHLORIDE [Concomitant]
     Active Substance: SULTOPRIDE HYDROCHLORIDE
     Indication: Blood pressure abnormal
     Dosage: 50 MG, 2X/DAY (STARTED ABOUT 11 YEARS AGO)
  8. LINZESS [Concomitant]
     Active Substance: LINACLOTIDE
     Indication: Constipation
     Dosage: 140 MG, 1X/DAY (STARTED ABOUT 1.5 YEARS AGO)
  9. CRESTOR [Concomitant]
     Active Substance: ROSUVASTATIN CALCIUM
     Indication: Blood cholesterol abnormal
     Dosage: 10 MG, 1X/DAY
  10. METFORMIN [Concomitant]
     Active Substance: METFORMIN HYDROCHLORIDE
     Indication: Diabetes mellitus
     Dosage: 500 MG, 2X/DAY
  11. LEXAPRO [Concomitant]
     Active Substance: ESCITALOPRAM OXALATE
     Indication: Anxiety
     Dosage: 5 MG, 1X/DAY
  12. ASPIRIN [Concomitant]
     Active Substance: ASPIRIN
     Indication: Stent placement
     Dosage: 325 MG, DAILY
  13. ASPIRIN [Concomitant]
     Active Substance: ASPIRIN
     Indication: Cardiac disorder
  14. VITAMIN D3 [Concomitant]
     Active Substance: CHOLECALCIFEROL
     Dosage: 2000 IU, 1X/DAY
  15. CALCIUM CARBONATE [Concomitant]
     Active Substance: CALCIUM CARBONATE
     Dosage: 500 MG, 2X/DAY (STARTED ABOUT 18 YEARS AGO)
  16. AMLODIPINE [Concomitant]
     Active Substance: AMLODIPINE BESYLATE
     Indication: Blood pressure management

REACTIONS (11)
  - Dry mouth [Recovered/Resolved]
  - Glossodynia [Unknown]
  - Oral disorder [Unknown]
  - Mouth ulceration [Recovered/Resolved]
  - Oral pain [Recovered/Resolved]
  - Odynophagia [Recovered/Resolved]
  - Viral infection [Recovering/Resolving]
  - Headache [Unknown]
  - Nausea [Unknown]
  - Pyrexia [Unknown]
  - Chills [Unknown]

NARRATIVE: CASE EVENT DATE: 20170801
